FAERS Safety Report 9217510 (Version 1)
Quarter: 2013Q2

REPORT INFORMATION
  Report Type: Report from Study
  Country: IT (occurrence: IT)
  Receive Date: 20130408
  Receipt Date: 20130408
  Transmission Date: 20140414
  Serious: Yes (Death, Hospitalization, Other)
  Sender: FDA-Public Use
  Company Number: IT-ROCHE-1211232

PATIENT
  Age: 44 Year
  Sex: Male

DRUGS (4)
  1. VEMURAFENIB [Suspect]
     Indication: MALIGNANT MELANOMA
     Route: 048
     Dates: start: 20121221, end: 20130315
  2. DELTACORTENE [Concomitant]
     Indication: FATIGUE
     Route: 048
     Dates: start: 20130313
  3. RANIDIL [Concomitant]
     Indication: PROPHYLAXIS AGAINST GASTROINTESTINAL ULCER
     Route: 048
     Dates: start: 20130313
  4. TRANEX [Concomitant]
     Indication: HAEMOPTYSIS
     Route: 048
     Dates: start: 20130307

REACTIONS (2)
  - Convulsion [Recovered/Resolved]
  - Disease progression [Fatal]
